APPROVED DRUG PRODUCT: LAMIVUDINE
Active Ingredient: LAMIVUDINE
Strength: 100MG
Dosage Form/Route: TABLET;ORAL
Application: A202941 | Product #001 | TE Code: AB
Applicant: APOTEX INC
Approved: Jan 2, 2014 | RLD: No | RS: Yes | Type: RX